FAERS Safety Report 9098910 (Version 1)
Quarter: 2013Q1

REPORT INFORMATION
  Report Type: Spontaneous
  Country: US (occurrence: US)
  Receive Date: 20130213
  Receipt Date: 20130213
  Transmission Date: 20140127
  Serious: No
  Sender: FDA-Public Use
  Company Number: US-PFIZER INC-2013057563

PATIENT
  Sex: Female

DRUGS (2)
  1. LYRICA [Suspect]
     Indication: DIABETIC NEUROPATHY
     Dosage: 100 MG, 2X/DAY
     Dates: start: 201301
  2. LYRICA [Suspect]
     Dosage: 100 MG, 3X/DAY
     Dates: start: 2013

REACTIONS (3)
  - Pain [Unknown]
  - Drug ineffective [Unknown]
  - Intentional drug misuse [Not Recovered/Not Resolved]
